FAERS Safety Report 9054519 (Version 1)
Quarter: 2013Q1

REPORT INFORMATION
  Report Type: Spontaneous
  Country: US (occurrence: US)
  Receive Date: 20130208
  Receipt Date: 20130208
  Transmission Date: 20140127
  Serious: No
  Sender: FDA-Public Use
  Company Number: US-GLAXOSMITHKLINE-A1004899A

PATIENT
  Age: 54 Year
  Sex: Female

DRUGS (5)
  1. PAXIL [Suspect]
     Indication: DEPRESSION
     Dosage: 40MG PER DAY
     Route: 048
     Dates: start: 1997, end: 201201
  2. WELLBUTRIN [Suspect]
     Indication: DEPRESSION
     Dosage: 150MG PER DAY
     Route: 048
     Dates: start: 201201
  3. AMBIEN [Concomitant]
  4. XANAX [Concomitant]
  5. AMITRIPTYLINE [Concomitant]

REACTIONS (4)
  - Drug effect decreased [Unknown]
  - Crying [Unknown]
  - Depression [Unknown]
  - Sleep disorder [Unknown]
